FAERS Safety Report 6046318-0 (Version None)
Quarter: 2009Q1

REPORT INFORMATION
  Report Type: 
  Country: None (occurrence: None)
  Receive Date: 20090122
  Receipt Date: 20090116
  Transmission Date: 20090719
  Serious: Yes (Disabling, Other)
  Sender: FDA-Public Use
  Company Number: SE-AMGEN-UK314800

PATIENT
  Sex: Female
  Weight: 53 kg

DRUGS (11)
  1. ARANESP [Suspect]
     Indication: ANAEMIA
     Route: 058
     Dates: start: 20071122, end: 20080519
  2. ARANESP [Suspect]
     Route: 058
     Dates: start: 20080310, end: 20080519
  3. NEORECORMON [Suspect]
     Dates: start: 20060201, end: 20070301
  4. MABTHERA [Concomitant]
     Route: 065
     Dates: start: 20080805, end: 20080826
  5. SANDIMMUNE [Concomitant]
     Route: 048
  6. PREDNISOLONE [Concomitant]
     Route: 048
  7. VENOFER [Concomitant]
     Route: 042
     Dates: start: 20080310, end: 20080512
  8. EMGESAN [Concomitant]
     Route: 048
     Dates: start: 20070605, end: 20081104
  9. IMODIUM [Concomitant]
     Route: 048
  10. BLOOD CELLS, PACKED HUMAN [Concomitant]
  11. CREON [Concomitant]

REACTIONS (2)
  - ANAEMIA [None]
  - APLASIA PURE RED CELL [None]
